FAERS Safety Report 16513796 (Version 2)
Quarter: 2019Q3

REPORT INFORMATION
  Report Type: Report from Study
  Country: PL (occurrence: PL)
  Receive Date: 20190702
  Receipt Date: 20190717
  Transmission Date: 20191004
  Serious: Yes (Death, Hospitalization)
  Sender: FDA-Public Use
  Company Number: PL-EMD SERONO-E2B_90068831

PATIENT
  Age: 61 Year
  Sex: Female
  Weight: 40 kg

DRUGS (9)
  1. PROXACIN [CIPROFLOXACIN] [Concomitant]
     Indication: PNEUMONIA
     Dosage: 500 MG, 2X/DAY (BID)
     Route: 048
     Dates: start: 20190531, end: 20190605
  2. ZOFENIL [Concomitant]
     Active Substance: ZOFENOPRIL
     Indication: PRODUCT USED FOR UNKNOWN INDICATION
     Dosage: 30 MG, 1X/DAY (QD)
     Route: 048
  3. AVELUMAB [Suspect]
     Active Substance: AVELUMAB
     Indication: SQUAMOUS CELL CARCINOMA OF HEAD AND NECK
     Dosage: DAY 1 OF LEAD IN PHASE; DAYS 8, 25, AND 39 OF CRT PHASE; EVERY 2 WEEKS DURING MAINTENANCE PHASE
     Route: 042
     Dates: start: 20190114, end: 20190606
  4. SEVREDOL [Concomitant]
     Active Substance: MORPHINE
     Indication: OROPHARYNGEAL PAIN
     Dosage: 20 MG, 1X/DAY (QD)
     Route: 048
  5. PARACETAMOL [Concomitant]
     Active Substance: ACETAMINOPHEN
     Indication: OROPHARYNGEAL PAIN
     Dosage: UNK UNK, 3X/DAY (TID)
     Route: 048
  6. MEGALIA [Concomitant]
     Active Substance: MEGESTROL ACETATE
     Indication: WEIGHT DECREASED
     Dosage: 20 ML, 1X/DAY  (QD)
     Route: 048
  7. BISOCARD [Concomitant]
     Active Substance: BISOPROLOL
     Indication: PRODUCT USED FOR UNKNOWN INDICATION
     Dosage: 30 MG, 1X/DAY(QD)
     Route: 048
  8. CISPLATIN. [Suspect]
     Active Substance: CISPLATIN
     Indication: SQUAMOUS CELL CARCINOMA OF HEAD AND NECK
     Dosage: 149 MG, CYCLIC, DAYS 1, 22 AND 43 OF CRT PHASE
     Route: 042
     Dates: start: 20190121, end: 20190307
  9. MATRIFEN [Concomitant]
     Active Substance: FENTANYL
     Indication: OROPHARYNGEAL PAIN
     Dosage: 50 UG, UNK, FREQUENCY: Q72H
     Route: 062

REACTIONS (1)
  - Death [Fatal]

NARRATIVE: CASE EVENT DATE: 20190614
